FAERS Safety Report 12632823 (Version 2)
Quarter: 2016Q3

REPORT INFORMATION
  Report Type: Spontaneous
  Country: US (occurrence: US)
  Receive Date: 20160808
  Receipt Date: 20160808
  Transmission Date: 20161109
  Serious: No
  Sender: FDA-Public Use
  Company Number: US-BEH-2015057101

PATIENT
  Sex: Female
  Weight: 50 kg

DRUGS (17)
  1. BACTROBAN [Concomitant]
     Active Substance: MUPIROCIN\MUPIROCIN CALCIUM
  2. PROAIR HFA [Concomitant]
     Active Substance: ALBUTEROL SULFATE
  3. FLUCONAZOLE. [Concomitant]
     Active Substance: FLUCONAZOLE
  4. CALCIUM-MAGNESIUM [Concomitant]
     Active Substance: CALCIUM\MAGNESIUM
  5. HIZENTRA [Suspect]
     Active Substance: HUMAN IMMUNOGLOBULIN G
     Indication: HYPOGAMMAGLOBULINAEMIA
     Route: 058
  6. EPIPEN [Concomitant]
     Active Substance: EPINEPHRINE
  7. VITAMIN D [Concomitant]
     Active Substance: CHOLECALCIFEROL
  8. METHOTREXATE. [Concomitant]
     Active Substance: METHOTREXATE
  9. AMOXICILLIN. [Concomitant]
     Active Substance: AMOXICILLIN
  10. DIPHENHYDRAMINE. [Concomitant]
     Active Substance: DIPHENHYDRAMINE
  11. ADDERAL XR [Concomitant]
  12. TUMS [Concomitant]
     Active Substance: CALCIUM CARBONATE
  13. OXAZEPAM. [Concomitant]
     Active Substance: OXAZEPAM
  14. ACETAMINOPHEN. [Concomitant]
     Active Substance: ACETAMINOPHEN
  15. FOLIC ACID. [Concomitant]
     Active Substance: FOLIC ACID
  16. PREDNISONE. [Concomitant]
     Active Substance: PREDNISONE
  17. PLAQUENIL [Concomitant]
     Active Substance: HYDROXYCHLOROQUINE SULFATE

REACTIONS (2)
  - Urinary tract infection [Unknown]
  - Cystitis [Unknown]
